FAERS Safety Report 21806339 (Version 1)
Quarter: 2023Q1

REPORT INFORMATION
  Report Type: Spontaneous
  Country: GB (occurrence: GB)
  Receive Date: 20230102
  Receipt Date: 20230102
  Transmission Date: 20230418
  Serious: Yes (Other)
  Sender: FDA-Public Use
  Company Number: None

PATIENT
  Age: 75 Year
  Sex: Female
  Weight: 57 kg

DRUGS (25)
  1. ALENDRONATE SODIUM [Suspect]
     Active Substance: ALENDRONATE SODIUM
     Dosage: 70 MILLIGRAM, QW
     Dates: start: 20221006
  2. MOMETASONE FUROATE [Concomitant]
     Active Substance: MOMETASONE FUROATE
     Dosage: SPRAY TWICE INTO EACH NOSTRIL ONCE A DAY
     Dates: start: 20220920
  3. ASPIRIN [Concomitant]
     Active Substance: ASPIRIN
     Dosage: TAKE ONE DAILY LONGTERM
     Dates: start: 20220920
  4. BALNEUM [GLYCINE MAX SEED OIL] [Concomitant]
     Dosage: UNK, APPLY AS NEEDED
     Dates: start: 20220920
  5. BISACODYL [Concomitant]
     Active Substance: BISACODYL
     Dosage: TAKE ONE TO TWO AT NIGHT, AS REQUIRED
     Dates: start: 20221220, end: 20221221
  6. CALCIUM CARBONATE\CHOLECALCIFEROL [Concomitant]
     Active Substance: CALCIUM CARBONATE\CHOLECALCIFEROL
     Dosage: TAKE ONE DAILY
     Dates: start: 20221117, end: 20221217
  7. CALCIUM PHOSPHATE\CHOLECALCIFEROL [Concomitant]
     Active Substance: CALCIUM PHOSPHATE\CHOLECALCIFEROL
     Dosage: TAKE THE CONTENTS OF ONE SACHET DAILY AS DIRECTED
     Dates: start: 20221018
  8. CHLORAMPHENICOL [Concomitant]
     Active Substance: CHLORAMPHENICOL
     Dosage: PUT ONE DROP INTO THE AFFECTED EYE(S) EVERY 2 H
     Dates: start: 20221220
  9. CLOTRIMAZOLE [Concomitant]
     Active Substance: CLOTRIMAZOLE
     Dosage: APPLY TO THE AFFECTED AREA 2 TO 3 TIMES A DAY
     Dates: start: 20221220
  10. ESOMEPRAZOLE [Concomitant]
     Active Substance: ESOMEPRAZOLE
     Dosage: TAKE ONE DAILY
     Dates: start: 20220920
  11. CALCIUM CARBONATE\CHOLECALCIFEROL [Concomitant]
     Active Substance: CALCIUM CARBONATE\CHOLECALCIFEROL
     Dosage: TAKE ONE TWICE DAILY (CHEWABLE)
     Dates: start: 20221006, end: 20221018
  12. FAMOTIDINE [Concomitant]
     Active Substance: FAMOTIDINE
     Dosage: ONE DAILY
     Dates: start: 20220920
  13. FEXOFENADINE [Concomitant]
     Active Substance: FEXOFENADINE HYDROCHLORIDE
     Dosage: TAKE ONE DAILY
     Dates: start: 20220920
  14. FLUCONAZOLE [Concomitant]
     Active Substance: FLUCONAZOLE
     Dosage: TAKE ONE IMMEDIATELY
     Dates: start: 20221220, end: 20221221
  15. BECLOMETHASONE\FORMOTEROL [Concomitant]
     Active Substance: BECLOMETHASONE\FORMOTEROL
     Dosage: TWO PUFFS TWICE DAILY
     Dates: start: 20220920
  16. HYALURONATE SODIUM [Concomitant]
     Active Substance: HYALURONATE SODIUM
     Dosage: USE AS DIRECTED
     Dates: start: 20220920
  17. LISINOPRIL [Concomitant]
     Active Substance: LISINOPRIL
     Dosage: TAKE ONE DAILY
     Dates: start: 20220920
  18. NITROFURANTOIN [Concomitant]
     Active Substance: NITROFURANTOIN
     Dosage: TAKE ONE TWICE DAILY
     Dates: start: 20221123, end: 20221130
  19. CALCIUM CARBONATE\SODIUM ALGINATE\SODIUM BICARBONATE [Concomitant]
     Active Substance: CALCIUM CARBONATE\SODIUM ALGINATE\SODIUM BICARBONATE
     Dosage: TAKE 10-20ML AFTER MEALS AND AT BEDTIME UP TO F
     Dates: start: 20220920
  20. PROCHLORPERAZINE [Concomitant]
     Active Substance: PROCHLORPERAZINE
     Dosage: TAKE ONE 1-3 TIMES A DAY ONLY WHEN REQUIRED FOR DIZZINESS
     Dates: start: 20221212, end: 20221222
  21. ALBUTEROL [Concomitant]
     Active Substance: ALBUTEROL
     Dosage: TWO PUFFS AS REQUIRED
     Dates: start: 20221007
  22. SILVER NITRATE [Concomitant]
     Active Substance: SILVER NITRATE
     Dosage: USE AS DIRECTED
     Dates: start: 20221019, end: 20221020
  23. TRIMETHOPRIM [Concomitant]
     Active Substance: TRIMETHOPRIM
     Dosage: TAKE ONE TWICE DAILY
     Dates: start: 20221012, end: 20221015
  24. VENTOLIN [Concomitant]
     Active Substance: ALBUTEROL SULFATE
     Dosage: TWO PUFFS AS REQUIRED
     Dates: start: 20220920, end: 20221007
  25. CARBOMER [Concomitant]
     Active Substance: CARBOMER
     Dosage: ONE DROP 4-6 TIMES/DAY BOTH EYES
     Dates: start: 20220920

REACTIONS (3)
  - Vulvovaginal candidiasis [Recovered/Resolved]
  - Oral candidiasis [Recovered/Resolved]
  - Dyspepsia [Unknown]

NARRATIVE: CASE EVENT DATE: 20221223
